FAERS Safety Report 6950114-7 (Version None)
Quarter: 2010Q3

REPORT INFORMATION
  Report Type: 
  Country: None (occurrence: None)
  Receive Date: 20100828
  Receipt Date: 20100219
  Transmission Date: 20110219
  Serious: No
  Sender: FDA-Public Use
  Company Number: US-ABBOTT-10P-163-0619442-00

PATIENT
  Sex: Male
  Weight: 95.34 kg

DRUGS (6)
  1. NIASPAN [Suspect]
     Indication: BLOOD CHOLESTEROL INCREASED
     Dates: start: 20091201, end: 20091201
  2. NIASPAN [Suspect]
     Dates: start: 20091201
  3. CARBAMAZEPINE [Concomitant]
     Indication: TREMOR
  4. DIOVAN [Concomitant]
     Indication: HYPERTENSION
  5. ATENOLOL [Concomitant]
     Indication: HYPERTENSION
  6. WARFARIN SODIUM [Concomitant]
     Indication: ARTERIAL THROMBOSIS

REACTIONS (1)
  - CYSTITIS [None]
